FAERS Safety Report 12369058 (Version 2)
Quarter: 2016Q3

REPORT INFORMATION
  Report Type: Report from Study
  Country: BR (occurrence: BR)
  Receive Date: 20160513
  Receipt Date: 20160812
  Transmission Date: 20161109
  Serious: Yes (Other)
  Sender: FDA-Public Use
  Company Number: BR-BRISTOL-MYERS SQUIBB COMPANY-BMS-2016-035903

PATIENT
  Age: 59 Year
  Sex: Female

DRUGS (4)
  1. PREDSIM [Concomitant]
     Active Substance: PREDNISOLONE
     Indication: PRODUCT USED FOR UNKNOWN INDICATION
     Route: 065
  2. HYDROCHLOROTHIAZIDE. [Concomitant]
     Active Substance: HYDROCHLOROTHIAZIDE
     Indication: PRODUCT USED FOR UNKNOWN INDICATION
     Route: 065
  3. LOTAR                              /01121602/ [Concomitant]
     Indication: PRODUCT USED FOR UNKNOWN INDICATION
     Route: 065
  4. ABATACEPT [Suspect]
     Active Substance: ABATACEPT
     Indication: RHEUMATOID ARTHRITIS
     Dosage: UNK UNK, QMO
     Route: 042

REACTIONS (11)
  - Blood cholesterol increased [Recovering/Resolving]
  - Fracture treatment [Recovering/Resolving]
  - Humerus fracture [Unknown]
  - Fall [Unknown]
  - Malaise [Unknown]
  - Hepatic steatosis [Recovering/Resolving]
  - Cystitis [Unknown]
  - Gastritis [Recovering/Resolving]
  - Urinary tract infection [Recovering/Resolving]
  - Pain [Unknown]
  - Kidney infection [Recovering/Resolving]

NARRATIVE: CASE EVENT DATE: 20160401
